FAERS Safety Report 8158096-X (Version None)
Quarter: 2012Q1

REPORT INFORMATION
  Report Type: 
  Country: None (occurrence: None)
  Receive Date: 20120222
  Receipt Date: 20120220
  Transmission Date: 20120608
  Serious: Yes (Hospitalization, Other)
  Sender: FDA-Public Use
  Company Number: PHFR2011IE06176

PATIENT
  Sex: Male

DRUGS (6)
  1. ARIPIPRAZOLE [Concomitant]
     Indication: SCHIZOPHRENIA
     Dosage: 20 MG, DAILY
     Route: 048
  2. LANSOPRAZOLE [Concomitant]
     Indication: HIATUS HERNIA
     Dosage: 15 MG, UNK
     Route: 048
  3. CLOZARIL [Suspect]
     Indication: SCHIZOPHRENIA
     Dosage: 300 MG, DAILY
     Route: 048
     Dates: start: 20110222
  4. LITHIUM CARBONATE [Concomitant]
     Indication: SCHIZOPHRENIA
     Dosage: 600 MG, DAILY
     Route: 048
  5. VALPROIC ACID [Concomitant]
     Indication: SCHIZOPHRENIA
     Dosage: 1400 MG, DAILY
     Route: 048
  6. AKINETON [Concomitant]
     Indication: SALIVARY HYPERSECRETION
     Dosage: 4 MG, DAILY
     Route: 048

REACTIONS (4)
  - BURN OESOPHAGEAL [None]
  - DYSPHAGIA [None]
  - PSYCHOTIC DISORDER [None]
  - INTENTIONAL SELF-INJURY [None]
